FAERS Safety Report 7498800 (Version 4)
Quarter: 2013Q3

REPORT INFORMATION
  Report Type: Report from Study
  Country: JP (occurrence: JP)
  Receive Date: 20100723
  Receipt Date: 20130703
  Transmission Date: 20140515
  Serious: Yes (Death, Life-Threatening, Hospitalization, Other)
  Sender: FDA-Public Use
  Company Number: PHHY2010JP42987

PATIENT
  Age: 68 Year
  Sex: Male

DRUGS (14)
  1. AFINITOR [Suspect]
     Indication: RENAL CELL CARCINOMA
     Dosage: 10 MG, DAILY
     Route: 048
     Dates: start: 20100423, end: 20100506
  2. AFINITOR [Suspect]
     Dosage: 10 MG, DAILY
     Route: 048
     Dates: start: 20100525, end: 201006
  3. AFINITOR [Suspect]
     Dosage: 10 MG DAILY
     Route: 048
     Dates: end: 201007
  4. AFINITOR [Suspect]
     Dosage: 10 MG, DAILY
     Route: 048
     Dates: start: 20100702, end: 20101118
  5. INTERFERON ALFA [Concomitant]
     Indication: METASTATIC RENAL CELL CARCINOMA
     Dosage: 3000000 IU, UNK
     Dates: start: 200311
  6. TECELEUKIN [Concomitant]
     Indication: METASTATIC RENAL CELL CARCINOMA
     Dosage: 700000 IU, UNK
     Dates: start: 20060515, end: 200607
  7. SUNITINIB MALATE [Concomitant]
     Indication: METASTATIC RENAL CELL CARCINOMA
     Dosage: 37.5 MG, UNK
     Route: 048
     Dates: start: 20091130, end: 20100412
  8. SORAFENIB TOSILATE [Concomitant]
     Indication: METASTATIC RENAL CELL CARCINOMA
     Dosage: 800 MG, UNK
     Route: 048
     Dates: start: 20080529, end: 200911
  9. PROMAC [Concomitant]
     Dosage: 150 MG, UNK
     Route: 048
     Dates: start: 201004, end: 20101026
  10. MEPTIN [Concomitant]
     Dosage: 100 UG, UNK
     Route: 048
     Dates: start: 201004, end: 20101026
  11. DECADRON [Concomitant]
     Dosage: 4 MG, UNK
     Route: 048
     Dates: start: 20101124, end: 20101207
  12. DEXALTIN [Concomitant]
     Route: 061
  13. KERATINAMIN [Concomitant]
     Route: 061
  14. OTHER ANALGESICS AND ANTIPYRETICS [Concomitant]

REACTIONS (7)
  - Pleural effusion [Fatal]
  - Metastases to central nervous system [Fatal]
  - Malignant neoplasm progression [Not Recovered/Not Resolved]
  - Renal cell carcinoma [Not Recovered/Not Resolved]
  - Cerebral haemorrhage [Recovering/Resolving]
  - Pneumonia [Recovering/Resolving]
  - Platelet count decreased [Unknown]
